FAERS Safety Report 6134221-7 (Version None)
Quarter: 2009Q1

REPORT INFORMATION
  Report Type: 
  Country: None (occurrence: None)
  Receive Date: 20090325
  Receipt Date: 20090308
  Transmission Date: 20090719
  Serious: Yes (Hospitalization)
  Sender: FDA-Public Use
  Company Number: 2006S1007031

PATIENT
  Age: 75 Year
  Sex: Female
  Weight: 79.8331 kg

DRUGS (12)
  1. PHOSPHOSODA FLAVOR NOT SPECIFIED [Suspect]
     Indication: COLONOSCOPY
     Dosage: 45 ML;TOTAL;PO
     Route: 048
     Dates: start: 20051009, end: 20051009
  2. METFORMIN HCL [Concomitant]
  3. MICARDIS [Concomitant]
  4. ZEBETA [Concomitant]
  5. ASPIRIN [Concomitant]
  6. PREVACID [Concomitant]
  7. LIPITOR [Concomitant]
  8. TYLENOL [Concomitant]
  9. SLOW-MAG [Concomitant]
  10. POTASSIUM CHLORIDE [Concomitant]
  11. FOSAMAX [Concomitant]
  12. DULCOLAX [Concomitant]

REACTIONS (2)
  - RENAL FAILURE [None]
  - RENAL FAILURE CHRONIC [None]
